FAERS Safety Report 4431262-2 (Version None)
Quarter: 2004Q3

REPORT INFORMATION
  Report Type: 
  Country: None (occurrence: None)
  Receive Date: 20040823
  Receipt Date: 20040823
  Transmission Date: 20050211
  Serious: No
  Sender: FDA-Public Use
  Company Number: None

PATIENT
  Age: 63 Year
  Sex: Male

DRUGS (1)
  1. CYPHER STENT  DRUG ELUTING STENT 2.5MM X 13MM [Suspect]

REACTIONS (1)
  - DEVICE FAILURE [None]
